FAERS Safety Report 10192435 (Version 2)
Quarter: 2014Q2

REPORT INFORMATION
  Report Type: Report from Study
  Country: JP (occurrence: JP)
  Receive Date: 20140523
  Receipt Date: 20140604
  Transmission Date: 20141212
  Serious: Yes (Other)
  Sender: FDA-Public Use
  Company Number: JP-OTSUKA-JP-2014-14231

PATIENT
  Age: 82 Year
  Sex: Female
  Weight: 76 kg

DRUGS (16)
  1. SAMSCA [Suspect]
     Indication: OEDEMA DUE TO CARDIAC DISEASE
     Dosage: 7.5 MG MILLIGRAM(S), QD
     Route: 048
     Dates: start: 20140425, end: 20140426
  2. SAMSCA [Suspect]
     Dosage: 7.5 MG MILLIGRAM(S), BID
     Route: 048
     Dates: start: 20140427
  3. TAKEPRON [Concomitant]
     Dosage: 30 MG MILLIGRAM(S), DAILY DOSE
     Route: 042
     Dates: end: 20140427
  4. DOBUPUM [Concomitant]
     Indication: CARDIAC FAILURE
     Dosage: 4 UG/KG/MIN, DAILY DOSE
     Route: 041
     Dates: end: 20140501
  5. DOBUPUM [Concomitant]
     Dosage: 1.5 UG/KG/MIN, DAILY DOSE
     Route: 041
     Dates: start: 20140502, end: 20140504
  6. INOVAN [Concomitant]
     Indication: CARDIAC FAILURE
     Dosage: 4 UG/KG/MIN, DAILY DOSE
     Route: 041
     Dates: end: 20140428
  7. INOVAN [Concomitant]
     Dosage: 2 UG/KG/MIN, DAILY DOSE
     Route: 041
     Dates: start: 20140429, end: 20140506
  8. LASIX [Concomitant]
     Indication: CARDIAC FAILURE
     Dosage: 160 MG MILLIGRAM(S), DAILY DOSE
     Route: 042
     Dates: end: 20140502
  9. LASIX [Concomitant]
     Dosage: 80 MG MILLIGRAM(S), DAILY DOSE
     Route: 042
     Dates: start: 20140503, end: 20140506
  10. LIPITOR [Concomitant]
     Dosage: 10 MG MILLIGRAM(S), DAILY DOSE
     Route: 048
  11. UNASYN S [Concomitant]
     Dosage: 3 G GRAM(S), DAILY DOSE
     Route: 042
     Dates: start: 20140426, end: 20140430
  12. TAKEPRON [Concomitant]
     Dosage: 15 MG MILLIGRAM(S), DAILY DOSE
     Route: 048
     Dates: start: 20140427
  13. ZOSYN [Concomitant]
     Dosage: 4.5 G GRAM(S), DAILY DOSE
     Route: 042
     Dates: start: 20140501, end: 20140508
  14. PIMOBENDAN [Concomitant]
     Indication: CARDIAC FAILURE
     Dosage: 5 MG MILLIGRAM(S), DAILY DOSE
     Route: 048
     Dates: start: 20140505
  15. LASIX [Concomitant]
     Indication: CARDIAC FAILURE
     Dosage: 80 MG MILLIGRAM(S), DAILY DOSE
     Route: 048
     Dates: start: 20140507
  16. KALGUT [Concomitant]
     Indication: CARDIAC FAILURE
     Dosage: 30 MG MILLIGRAM(S), DAILY DOSE
     Route: 048
     Dates: start: 20140507

REACTIONS (2)
  - Blood urea increased [Unknown]
  - Blood lactate dehydrogenase increased [Recovered/Resolved]
